FAERS Safety Report 16828257 (Version 2)
Quarter: 2019Q4

REPORT INFORMATION
  Report Type: Spontaneous
  Country: BR (occurrence: BR)
  Receive Date: 20190919
  Receipt Date: 20191020
  Transmission Date: 20200122
  Serious: Yes (Other)
  Sender: FDA-Public Use
  Company Number: PHHY2019BR214711

PATIENT
  Age: 77 Year
  Weight: 70 kg

DRUGS (4)
  1. NPH INSULIN [Concomitant]
     Active Substance: INSULIN BEEF
     Indication: DIABETES MELLITUS
     Dosage: 20 IU(20 IU I MORNING,10 IU BEFORE LUNCH AND DINNER)
     Route: 058
  2. AZOPT [Suspect]
     Active Substance: BRINZOLAMIDE
     Dosage: 1 GTT, TID
     Route: 031
  3. SIMBRINZA [Suspect]
     Active Substance: BRIMONIDINE TARTRATE\BRINZOLAMIDE
     Indication: INTRAOCULAR PRESSURE INCREASED
     Dosage: 1 GTT, BID (STOP 1 WEEKS AGO)
     Route: 031
     Dates: start: 201909
  4. AZOPT [Suspect]
     Active Substance: BRINZOLAMIDE
     Indication: INTRAOCULAR PRESSURE INCREASED
     Dosage: 1 GTT, BID
     Route: 031
     Dates: start: 201905, end: 201909

REACTIONS (4)
  - Somnolence [Recovered/Resolved]
  - Hypersensitivity [Unknown]
  - Diabetes mellitus [Unknown]
  - Ocular hyperaemia [Recovered/Resolved]

NARRATIVE: CASE EVENT DATE: 20190907
